FAERS Safety Report 8965444 (Version 2)
Quarter: 2013Q1

REPORT INFORMATION
  Report Type: Report from Study
  Country: US (occurrence: NL)
  Receive Date: 20121213
  Receipt Date: 20130108
  Transmission Date: 20140127
  Serious: Yes (Hospitalization)
  Sender: FDA-Public Use
  Company Number: NL-PFIZER INC-2012310038

PATIENT
  Age: 85 Year
  Sex: Male
  Weight: 87 kg

DRUGS (11)
  1. GENOTROPIN [Suspect]
     Dosage: 0.2 MG, 1X/DAY,7 INJECTIONS/WEEK.
     Route: 058
     Dates: start: 20020130
  2. HYDROCORTISONE [Concomitant]
     Indication: BLOOD CORTICOTROPHIN DECREASED
     Dosage: UNK
     Dates: start: 19940609
  3. LEVOTHYROXINE [Concomitant]
     Indication: BLOOD THYROID STIMULATING HORMONE DECREASED
     Dosage: UNK
     Dates: start: 19941028
  4. LEVOTHYROXINE [Concomitant]
     Indication: PRIMARY HYPOTHYROIDISM
  5. TESTOSTERONE [Concomitant]
     Indication: LUTEINISING HORMONE DEFICIENCY
     Dosage: UNK
     Dates: start: 19951108
  6. TESTOSTERONE [Concomitant]
     Indication: FOLLICLE-STIMULATING HORMONE DEFICIENCY
  7. TESTOSTERONE [Concomitant]
     Indication: HYPOGONADISM MALE
  8. DILTIAZEM [Concomitant]
     Indication: ANGINA PECTORIS
     Dosage: UNK
     Dates: start: 20010108
  9. FORMOTEROL [Concomitant]
     Indication: LUNG DISORDER
     Dosage: UNK
     Dates: start: 20010108
  10. IPRATROPIUM [Concomitant]
     Indication: BRONCHITIS CHRONIC
     Dosage: UNK
     Dates: start: 20010108
  11. ENALAPRIL [Concomitant]
     Indication: ESSENTIAL HYPERTENSION
     Dosage: UNK
     Dates: start: 19980110

REACTIONS (1)
  - Coronary artery bypass [Unknown]
